FAERS Safety Report 6665915-2 (Version None)
Quarter: 2010Q2

REPORT INFORMATION
  Report Type: 
  Country: None (occurrence: None)
  Receive Date: 20100402
  Receipt Date: 20100324
  Transmission Date: 20101027
  Serious: Yes (Hospitalization, Other)
  Sender: FDA-Public Use
  Company Number: JP-ROCHE-694482

PATIENT
  Age: 76 Year
  Sex: Female

DRUGS (4)
  1. AVASTIN [Suspect]
     Indication: COLON CANCER RECURRENT
     Route: 041
  2. ELPLAT [Concomitant]
     Route: 041
  3. FLUOROURACIL [Concomitant]
     Route: 041
  4. LEVOFOLINATE [Concomitant]
     Route: 041

REACTIONS (6)
  - DUODENAL PERFORATION [None]
  - ILEAL PERFORATION [None]
  - INTESTINAL OBSTRUCTION [None]
  - NEUROPATHY PERIPHERAL [None]
  - PERITONITIS [None]
  - SEPTIC SHOCK [None]
